FAERS Safety Report 9095486 (Version 1)
Quarter: 2013Q1

REPORT INFORMATION
  Report Type: Report from Study
  Country: US (occurrence: US)
  Receive Date: 20130131
  Receipt Date: 20130131
  Transmission Date: 20140127
  Serious: No
  Sender: FDA-Public Use
  Company Number: US-ABBOTT-12P-163-1007619-00

PATIENT
  Sex: Female
  Weight: 102.15 kg

DRUGS (7)
  1. HUMIRA [Suspect]
     Indication: RHEUMATOID ARTHRITIS
     Dates: start: 201206, end: 201210
  2. HUMIRA [Suspect]
     Indication: PSORIASIS
  3. GLYBIZIDE [Concomitant]
     Indication: PRODUCT USED FOR UNKNOWN INDICATION
  4. LISINOPRIL [Concomitant]
     Indication: PRODUCT USED FOR UNKNOWN INDICATION
  5. METFORM [Concomitant]
     Indication: PRODUCT USED FOR UNKNOWN INDICATION
  6. ONGLYZA [Concomitant]
     Indication: PRODUCT USED FOR UNKNOWN INDICATION
  7. PRAVASTATIN [Concomitant]
     Indication: PRODUCT USED FOR UNKNOWN INDICATION

REACTIONS (4)
  - Nail discolouration [Not Recovered/Not Resolved]
  - Drug ineffective [Not Recovered/Not Resolved]
  - Sinusitis [Recovered/Resolved]
  - Herpes zoster [Recovered/Resolved]
